FAERS Safety Report 23872590 (Version 1)
Quarter: 2024Q2

REPORT INFORMATION
  Report Type: Spontaneous
  Country: US (occurrence: US)
  Receive Date: 20240520
  Receipt Date: 20240520
  Transmission Date: 20240715
  Serious: Yes (Life-Threatening, Hospitalization, Other)
  Sender: FDA-Public Use
  Company Number: US-862174955-ML2024-02961

PATIENT
  Age: 41 Year
  Sex: Male

DRUGS (1)
  1. BUPROPION [Suspect]
     Active Substance: BUPROPION
     Indication: Intentional overdose

REACTIONS (4)
  - Cardiogenic shock [Unknown]
  - Bradycardia [Unknown]
  - Toxicity to various agents [Unknown]
  - Intentional overdose [Unknown]
